FAERS Safety Report 22217948 (Version 4)
Quarter: 2023Q2

REPORT INFORMATION
  Report Type: Spontaneous
  Country: US (occurrence: US)
  Receive Date: 20230417
  Receipt Date: 20230608
  Transmission Date: 20230721
  Serious: No
  Sender: FDA-Public Use
  Company Number: US-BRISTOL-MYERS SQUIBB COMPANY-2023-053103

PATIENT
  Age: 65 Year
  Sex: Male
  Weight: 117.93 kg

DRUGS (2)
  1. LENALIDOMIDE [Suspect]
     Active Substance: LENALIDOMIDE
     Indication: Plasma cell myeloma
     Dosage: TAKE DAILY FOR 7 DAYS ON, THEN 7 DAYS ?OFF. REPEAT
     Route: 048
     Dates: start: 20221216
  2. LENALIDOMIDE [Suspect]
     Active Substance: LENALIDOMIDE

REACTIONS (5)
  - Blood potassium decreased [Unknown]
  - Muscle spasms [Not Recovered/Not Resolved]
  - Off label use [Unknown]
  - Protein total increased [Unknown]
  - Full blood count abnormal [Unknown]
